FAERS Safety Report 7160511-5 (Version None)
Quarter: 2010Q4

REPORT INFORMATION
  Report Type: 
  Country: None (occurrence: None)
  Receive Date: 20101214
  Receipt Date: 20100104
  Transmission Date: 20110411
  Serious: Yes (Other)
  Sender: FDA-Public Use
  Company Number: US-AMGEN-QUU379748

PATIENT

DRUGS (15)
  1. ENBREL [Suspect]
     Indication: RHEUMATOID ARTHRITIS
     Dosage: 50 MG, QWK
     Route: 058
  2. SULFASALAZINE [Concomitant]
     Dosage: 500 MG, BID
     Dates: start: 20090923
  3. GUAIFENESIN [Concomitant]
  4. FOLIC ACID [Concomitant]
     Dosage: 1 MG, BID
     Dates: start: 20090923
  5. FISH OIL [Concomitant]
  6. CALCIUM [Concomitant]
     Dosage: UNK UNK, BID
     Route: 048
  7. ERGOCALCIFEROL [Concomitant]
     Dosage: UNK UNK, QD
     Route: 048
  8. ESTROGENS [Concomitant]
     Dosage: .25 MG, 2 TIMES/WK
     Route: 062
  9. PROMETRIUM [Concomitant]
     Dosage: 100 MG, QD
     Route: 048
  10. VARENICLINE TARTRATE [Concomitant]
     Dosage: .5 MG, QD
     Route: 048
     Dates: start: 20090923
  11. LEVOTHYROXINE SODIUM [Concomitant]
     Dosage: 75 A?G, QD
     Route: 048
  12. LOVAZA [Concomitant]
     Dosage: 1000 MG, QD
     Route: 048
  13. MULTI-VITAMINS [Concomitant]
     Dosage: UNK UNK, QD
     Route: 048
  14. GLUCOSAMINE [Concomitant]
     Dosage: UNK UNK, QD
     Route: 048
  15. VIVELLE [Concomitant]
     Dosage: .025 MG, 2 TIMES/WK
     Route: 062

REACTIONS (3)
  - BREAST CANCER [None]
  - IMMUNE SYSTEM DISORDER [None]
  - STRESS [None]
